FAERS Safety Report 7546585-8 (Version None)
Quarter: 2011Q2

REPORT INFORMATION
  Report Type: 
  Country: None (occurrence: None)
  Receive Date: 20110614
  Receipt Date: 20110606
  Transmission Date: 20111010
  Serious: Yes (Hospitalization)
  Sender: FDA-Public Use
  Company Number: IT-TEVA-273141ISR

PATIENT
  Sex: Female

DRUGS (13)
  1. DEXAMETHASONE [Suspect]
     Indication: MULTIPLE MYELOMA
     Dates: start: 20110307
  2. CLONAZEPAM [Concomitant]
     Indication: ANXIETY
     Dosage: .5 MILLIGRAM;
     Route: 048
     Dates: start: 20101124
  3. FENTANYL [Concomitant]
     Indication: PAIN
     Dosage: 16.6667 MICROGRAM;
     Route: 062
     Dates: start: 20101124
  4. LENALIDOMIDE [Suspect]
     Route: 048
     Dates: start: 20110207, end: 20110215
  5. LENALIDOMIDE [Suspect]
     Route: 048
     Dates: start: 20100726
  6. LENALIDOMIDE [Suspect]
     Indication: MULTIPLE MYELOMA
     Route: 048
     Dates: start: 20110307
  7. OMEPRAZOLE [Concomitant]
     Indication: GASTRIC DISORDER
     Dosage: 20 MILLIGRAM;
     Route: 048
     Dates: start: 20100629
  8. DEXAMETHASONE [Suspect]
     Dates: start: 20110207, end: 20110228
  9. DICLOFENAC SODIUM [Concomitant]
     Indication: PAIN
     Route: 030
     Dates: start: 20101005
  10. CITALOPRAM [Concomitant]
     Indication: DEPRESSION
     Route: 048
     Dates: start: 20101124
  11. DEXAMETHASONE [Suspect]
     Dates: start: 20100726
  12. LENALIDOMIDE [Suspect]
     Route: 048
     Dates: start: 20110217
  13. IBUPROFEN [Concomitant]
     Indication: PAIN
     Dosage: 600 MILLIGRAM;
     Route: 048
     Dates: start: 20100906

REACTIONS (2)
  - LOBAR PNEUMONIA [None]
  - PYREXIA [None]
